FAERS Safety Report 21490882 (Version 1)
Quarter: 2022Q4

REPORT INFORMATION
  Report Type: Spontaneous
  Country: DE (occurrence: DE)
  Receive Date: 20221021
  Receipt Date: 20221021
  Transmission Date: 20230112
  Serious: No
  Sender: FDA-Public Use
  Company Number: DE-ALKEM LABORATORIES LIMITED-DE-ALKEM-2022-10337

PATIENT
  Age: 43 Year
  Sex: Female
  Weight: 95 kg

DRUGS (6)
  1. FINGOLIMOD [Suspect]
     Active Substance: FINGOLIMOD
     Indication: Relapsing-remitting multiple sclerosis
     Dosage: 0.5 MILLIGRAM
     Route: 048
     Dates: start: 20211124
  2. FINGOLIMOD [Suspect]
     Active Substance: FINGOLIMOD
     Dosage: 0.5 MILLIGRAM
     Route: 048
     Dates: start: 20220217
  3. FINGOLIMOD [Suspect]
     Active Substance: FINGOLIMOD
     Dosage: 0.5 MILLIGRAM
     Route: 048
     Dates: start: 20220510
  4. COMIRNATY [Concomitant]
     Active Substance: TOZINAMERAN
     Indication: COVID-19 immunisation
     Dosage: 10 MICROGRAM
     Route: 030
     Dates: start: 20210306, end: 20210306
  5. COMIRNATY [Concomitant]
     Active Substance: TOZINAMERAN
     Dosage: 10 MICROGRAM
     Route: 030
     Dates: start: 20210617, end: 20210617
  6. COMIRNATY [Concomitant]
     Active Substance: TOZINAMERAN
     Dosage: 5 MICROGRAM
     Route: 030
     Dates: start: 20211123, end: 20211123

REACTIONS (1)
  - Lymphopenia [Recovered/Resolved]

NARRATIVE: CASE EVENT DATE: 20220210
